FAERS Safety Report 4551653-9 (Version None)
Quarter: 2005Q1

REPORT INFORMATION
  Report Type: 
  Country: None (occurrence: None)
  Receive Date: 20050111
  Receipt Date: 20041228
  Transmission Date: 20050727
  Serious: Yes (Hospitalization)
  Sender: FDA-Public Use
  Company Number: 2004-05402

PATIENT
  Age: 68 Year
  Sex: Female

DRUGS (10)
  1. TRAZODONE HCL [Suspect]
     Dosage: 75 MG DAILY ORAL
     Route: 048
     Dates: start: 20040820
  2. DURAGESIC [Suspect]
     Indication: PAIN
     Dosage: EVERY 72 HOURS TRANSDERMAL
     Route: 062
     Dates: start: 20040301
  3. AMITRIPTYLINE HCL [Suspect]
     Indication: INSOMNIA
     Dosage: 25 MG, DAILY ORAL
     Route: 048
  4. VICODINE (PARACETAMOL) [Concomitant]
  5. DETROL [Concomitant]
  6. ELAVIL [Concomitant]
  7. TRAZODONE (TRAZODONE) [Concomitant]
  8. DIAZEPAM [Concomitant]
  9. FLORINEF [Concomitant]
  10. EFFEXOR [Concomitant]

REACTIONS (4)
  - FALL [None]
  - FOOT FRACTURE [None]
  - MEDICATION ERROR [None]
  - PNEUMONIA [None]
